FAERS Safety Report 19686718 (Version 1)
Quarter: 2021Q3

REPORT INFORMATION
  Report Type: Spontaneous
  Country: CN (occurrence: CN)
  Receive Date: 20210811
  Receipt Date: 20210811
  Transmission Date: 20211014
  Serious: Yes (Other)
  Sender: FDA-Public Use
  Company Number: CN-ALLERGAN-2127912US

PATIENT
  Sex: Female
  Weight: 90 kg

DRUGS (1)
  1. CEFTAZIDIME;AVIBACTAM ? BP [Suspect]
     Active Substance: AVIBACTAM SODIUM\CEFTAZIDIME
     Indication: ANTI-INFECTIVE THERAPY
     Dosage: 2.5 G, Q8HR
     Route: 041
     Dates: start: 20210105, end: 20210114

REACTIONS (3)
  - Anaemia [Recovering/Resolving]
  - Haemolysis [Unknown]
  - Melaena [Recovered/Resolved]

NARRATIVE: CASE EVENT DATE: 20210105
